FAERS Safety Report 25545942 (Version 1)
Quarter: 2025Q3

REPORT INFORMATION
  Report Type: Spontaneous
  Country: EU (occurrence: EU)
  Receive Date: 20250712
  Receipt Date: 20250712
  Transmission Date: 20251020
  Serious: Yes (Other)
  Sender: UNITED THERAPEUTICS
  Company Number: EU-UNITED THERAPEUTICS-UNT-2025-023185

PATIENT
  Age: 35 Year

DRUGS (10)
  1. REMODULIN [Suspect]
     Active Substance: TREPROSTINIL
     Indication: Pulmonary arterial hypertension
     Route: 041
  2. SOTATERCEPT [Suspect]
     Active Substance: SOTATERCEPT
     Indication: Pulmonary arterial hypertension
  3. SOTATERCEPT [Suspect]
     Active Substance: SOTATERCEPT
  4. SOTATERCEPT [Suspect]
     Active Substance: SOTATERCEPT
  5. MACITENTAN [Concomitant]
     Active Substance: MACITENTAN
     Indication: Product used for unknown indication
  6. RIOCIGUAT [Concomitant]
     Active Substance: RIOCIGUAT
     Indication: Product used for unknown indication
  7. OXYGEN [Concomitant]
     Active Substance: OXYGEN
     Indication: Hypoxia
  8. OXYGEN [Concomitant]
     Active Substance: OXYGEN
     Indication: Dyspnoea exertional
  9. OXYGEN [Concomitant]
     Active Substance: OXYGEN
     Indication: Presyncope
  10. OXYGEN [Concomitant]
     Active Substance: OXYGEN
     Indication: Cyanosis

REACTIONS (9)
  - Hypoxia [Recovering/Resolving]
  - Telangiectasia [Recovering/Resolving]
  - Pulmonary arterial pressure decreased [Unknown]
  - Cardiac output decreased [Unknown]
  - Dyspnoea exertional [Unknown]
  - Presyncope [Unknown]
  - Cyanosis [Unknown]
  - Pulmonary vascular disorder [Unknown]
  - N-terminal prohormone brain natriuretic peptide increased [Recovering/Resolving]
